FAERS Safety Report 4582243-X (Version None)
Quarter: 2005Q1

REPORT INFORMATION
  Report Type: 
  Country: None (occurrence: None)
  Receive Date: 20050119
  Receipt Date: 20040505
  Transmission Date: 20050727
  Serious: Yes (Hospitalization)
  Sender: FDA-Public Use
  Company Number: 2004-BP-03487RO

PATIENT
  Age: 22 Year
  Sex: Female
  Weight: 48.1 kg

DRUGS (4)
  1. LITHIUM CARBONATE [Suspect]
     Indication: BIPOLAR DISORDER
     Dosage: 1200 MG/DAY (300 MG, 4 IN 1 D), PO
     Route: 048
     Dates: start: 20020801, end: 20040401
  2. VIVARIN (CAFFEINE) [Concomitant]
  3. VITAMINS (VITAMINS) [Concomitant]
  4. ORTHO TRI-CYCLEN (CILEST) [Concomitant]

REACTIONS (4)
  - DRUG TOXICITY [None]
  - INSOMNIA [None]
  - TREMOR [None]
  - WEIGHT DECREASED [None]
